FAERS Safety Report 5708054-7 (Version None)
Quarter: 2008Q2

REPORT INFORMATION
  Report Type: 
  Country: None (occurrence: None)
  Receive Date: 20080417
  Receipt Date: 20080417
  Transmission Date: 20081010
  Serious: Yes (Other)
  Sender: FDA-Public Use
  Company Number: None

PATIENT
  Sex: Male
  Weight: 77 kg

DRUGS (1)
  1. HEPARIN [Suspect]
     Indication: CENTRAL VENOUS CATHETERISATION
     Dosage: 300 UNITS EACH LUMEN DAILY IV
     Route: 042
     Dates: start: 20080318, end: 20080409

REACTIONS (10)
  - ABDOMINAL PAIN UPPER [None]
  - DIARRHOEA [None]
  - DYSPHAGIA [None]
  - DYSPNOEA [None]
  - FATIGUE [None]
  - HEADACHE [None]
  - HYPERHIDROSIS [None]
  - PALPITATIONS [None]
  - SKIN BURNING SENSATION [None]
  - THIRST [None]
